FAERS Safety Report 8142305-7 (Version None)
Quarter: 2012Q1

REPORT INFORMATION
  Report Type: 
  Country: None (occurrence: None)
  Receive Date: 20120103
  Receipt Date: 20111006
  Transmission Date: 20120608
  Serious: No
  Sender: FDA-Public Use
  Company Number: AE-2011-001566

PATIENT
  Age: 47 Year
  Sex: Female

DRUGS (13)
  1. RIBAVIRIN [Concomitant]
  2. LISINOPRIL [Concomitant]
  3. ESTRADIOL [Concomitant]
  4. METFORMIN HCL [Concomitant]
  5. INCIVEK [Suspect]
     Dosage: 2250 MG(750 MG, 1 IN 8 HR)
     Dates: start: 20110910
  6. PEGASYS [Concomitant]
  7. VITAMIN D [Concomitant]
  8. LANTUS [Concomitant]
  9. VITAMIN E [Concomitant]
  10. WELCHOL [Concomitant]
  11. MULTI VIT (MULTIVITAMINS) [Concomitant]
  12. LYRICA [Concomitant]
  13. LORAZEPAM [Concomitant]

REACTIONS (2)
  - DIARRHOEA [None]
  - HAEMORRHOIDS [None]
